FAERS Safety Report 17100729 (Version 1)
Quarter: 2019Q4

REPORT INFORMATION
  Report Type: Spontaneous
  Country: US (occurrence: US)
  Receive Date: 20191202
  Receipt Date: 20191202
  Transmission Date: 20200122
  Serious: No
  Sender: FDA-Public Use
  Company Number: US-SA-2019SA294651

PATIENT
  Age: 80 Year
  Sex: Female

DRUGS (1)
  1. DULCOLAX LIQUID MINT (MAGNESIUM HYDROXIDE) [Suspect]
     Active Substance: MAGNESIUM HYDROXIDE
     Indication: VOMITING
     Dosage: 45 ML, 1X
     Dates: start: 20190924, end: 20190924

REACTIONS (3)
  - Abdominal discomfort [Unknown]
  - Vomiting [Recovered/Resolved]
  - Nausea [Unknown]

NARRATIVE: CASE EVENT DATE: 2019
